FAERS Safety Report 7397499-8 (Version None)
Quarter: 2011Q2

REPORT INFORMATION
  Report Type: 
  Country: None (occurrence: None)
  Receive Date: 20110406
  Receipt Date: 20110325
  Transmission Date: 20111010
  Serious: Yes (Other)
  Sender: FDA-Public Use
  Company Number: PHHY2011GB24617

PATIENT
  Age: 75 Year
  Sex: Female
  Weight: 35 kg

DRUGS (8)
  1. SERETIDE ^ALLEN + HANBURYS LTD^ [Suspect]
     Indication: EMPHYSEMA
     Dosage: 2 DF, BID
  2. PARACETAMOL [Concomitant]
     Indication: PAIN
     Dosage: 1 G, ONCE/SINGLE
     Route: 048
     Dates: start: 20110228, end: 20110228
  3. ATROVENT [Concomitant]
     Indication: EMPHYSEMA
     Dosage: 0.5 MG, QH
     Dates: start: 20110120
  4. CYCLIZINE [Concomitant]
     Indication: NAUSEA
     Dosage: 50 MG, TID
     Route: 048
     Dates: start: 20110301, end: 20110303
  5. ENOXAPARIN [Concomitant]
     Indication: THROMBOSIS PROPHYLAXIS
     Dosage: 20 MG, QD
     Route: 058
     Dates: start: 20110225
  6. SALBUTAMOL [Concomitant]
     Dosage: 2.5 MG, QD
     Dates: start: 20110226, end: 20110303
  7. DOXYCYCLINE [Suspect]
     Indication: LOWER RESPIRATORY TRACT INFECTION
     Dosage: 100 MG, BID
     Route: 048
     Dates: start: 20110227, end: 20110303
  8. LACTULOSE [Concomitant]
     Indication: CONSTIPATION
     Dosage: 10 ML, BID
     Route: 048
     Dates: start: 20110227

REACTIONS (3)
  - LIVER FUNCTION TEST ABNORMAL [None]
  - ASPARTATE AMINOTRANSFERASE INCREASED [None]
  - ALANINE AMINOTRANSFERASE INCREASED [None]
